FAERS Safety Report 25460970 (Version 1)
Quarter: 2025Q2

REPORT INFORMATION
  Report Type: Spontaneous
  Country: US (occurrence: None)
  Receive Date: 20250618
  Receipt Date: 20250618
  Transmission Date: 20250716
  Serious: Yes (Other)
  Sender: FDA-CTU
  Company Number: None

PATIENT
  Age: 29 Year
  Sex: Female
  Weight: 72 kg

DRUGS (8)
  1. DULOXETINE [Suspect]
     Active Substance: DULOXETINE
     Indication: Pain
     Dosage: FREQUENCY : DAILY;?
     Route: 048
     Dates: start: 20121012, end: 20130418
  2. HYDROXYZINE HYDROCHLORIDE [Concomitant]
     Active Substance: HYDROXYZINE HYDROCHLORIDE
  3. AMITRIPTYLINE [Concomitant]
     Active Substance: AMITRIPTYLINE
  4. BACLOFEN [Concomitant]
     Active Substance: BACLOFEN
  5. OXYCODONE [Concomitant]
     Active Substance: OXYCODONE
  6. MORPHINE [Concomitant]
     Active Substance: MORPHINE
  7. TRIAMTERENE [Concomitant]
     Active Substance: TRIAMTERENE
  8. MAGNESIUM GLYCINATE [Concomitant]
     Active Substance: MAGNESIUM GLYCINATE

REACTIONS (8)
  - Gait inability [None]
  - Myalgia [None]
  - Fatigue [None]
  - Withdrawal syndrome [None]
  - Neuralgia [None]
  - Bedridden [None]
  - Asthenia [None]
  - Quality of life decreased [None]

NARRATIVE: CASE EVENT DATE: 20130112
